FAERS Safety Report 25031096 (Version 1)
Quarter: 2025Q1

REPORT INFORMATION
  Report Type: Spontaneous
  Country: US (occurrence: US)
  Receive Date: 20250303
  Receipt Date: 20250303
  Transmission Date: 20250408
  Serious: No
  Sender: BRISTOL-MYERS SQUIBB COMPANY
  Company Number: US-BRISTOL-MYERS SQUIBB COMPANY-2025-030725

PATIENT
  Age: 85 Year
  Sex: Female
  Weight: 54.43 kg

DRUGS (3)
  1. POMALYST [Suspect]
     Active Substance: POMALIDOMIDE
     Indication: Plasma cell myeloma
     Dates: start: 2022
  2. POMALYST [Suspect]
     Active Substance: POMALIDOMIDE
     Dates: start: 2022
  3. POMALYST [Suspect]
     Active Substance: POMALIDOMIDE
     Dates: start: 2022

REACTIONS (2)
  - Diarrhoea [Unknown]
  - Drug intolerance [Unknown]
